FAERS Safety Report 15597360 (Version 2)
Quarter: 2018Q4

REPORT INFORMATION
  Report Type: Spontaneous
  Country: US (occurrence: US)
  Receive Date: 20181108
  Receipt Date: 20181210
  Transmission Date: 20190205
  Serious: Yes (Other)
  Sender: FDA-Public Use
  Company Number: US-ASSERTIO THERAPEUTICS, INC.-US-2018DEP001868

PATIENT

DRUGS (8)
  1. TRAMADOL. [Concomitant]
     Active Substance: TRAMADOL
     Indication: NERVE INJURY
     Dosage: 50 MG, UNK
     Route: 048
     Dates: start: 201702, end: 2017
  2. BENADRYL [Concomitant]
     Active Substance: DIPHENHYDRAMINE HYDROCHLORIDE
     Indication: HYPERSENSITIVITY
     Dosage: 2 DF, QD
     Route: 048
  3. TRAMADOL. [Concomitant]
     Active Substance: TRAMADOL
     Dosage: 25 MG, PRN
     Route: 048
     Dates: start: 2018
  4. GRALISE [Suspect]
     Active Substance: GABAPENTIN
     Indication: NEURALGIA
     Dosage: 300 MG, TID
     Route: 048
     Dates: start: 201809, end: 2018
  5. GRALISE [Suspect]
     Active Substance: GABAPENTIN
     Dosage: 150 MG, QD
     Dates: start: 2018, end: 2018
  6. GRALISE [Suspect]
     Active Substance: GABAPENTIN
     Indication: COMPLEX REGIONAL PAIN SYNDROME
     Dosage: 600 MG, TID
     Route: 048
     Dates: start: 201809, end: 2018
  7. XANAX [Concomitant]
     Active Substance: ALPRAZOLAM
     Indication: SLEEP DISORDER
     Dosage: .25 MG, UNK
     Route: 048
  8. GRALISE [Suspect]
     Active Substance: GABAPENTIN
     Indication: NERVE INJURY
     Dosage: 1800 MG, QD
     Route: 048
     Dates: start: 201702, end: 2017

REACTIONS (11)
  - Speech disorder [Not Recovered/Not Resolved]
  - Feeling abnormal [Unknown]
  - Multiple sclerosis [Not Recovered/Not Resolved]
  - Intentional underdose [Unknown]
  - Cognitive disorder [Unknown]
  - Product use in unapproved indication [Unknown]
  - Akinesia [Not Recovered/Not Resolved]
  - Pain [Unknown]
  - Tremor [Not Recovered/Not Resolved]
  - Product dose omission [Unknown]
  - Drug titration error [Unknown]

NARRATIVE: CASE EVENT DATE: 201702
